FAERS Safety Report 8302191-9 (Version None)
Quarter: 2012Q2

REPORT INFORMATION
  Report Type: 
  Country: None (occurrence: None)
  Receive Date: 20120420
  Receipt Date: 20120417
  Transmission Date: 20120825
  Serious: Yes (Hospitalization, Other)
  Sender: FDA-Public Use
  Company Number: CA-US-EMD SERONO, INC.-230080J09CAN

PATIENT
  Sex: Female

DRUGS (2)
  1. REBIF [Suspect]
     Dosage: FULL DOSE
     Dates: start: 20120401
  2. REBIF [Suspect]
     Indication: MULTIPLE SCLEROSIS
     Route: 058
     Dates: start: 20020311, end: 20120103

REACTIONS (4)
  - COLITIS ULCERATIVE [None]
  - BREAST CANCER [None]
  - PNEUMONIA [None]
  - ILEOSTOMY [None]
